FAERS Safety Report 5054493-X (Version None)
Quarter: 2006Q3

REPORT INFORMATION
  Report Type: 
  Country: None (occurrence: None)
  Receive Date: 20060714
  Receipt Date: 20060627
  Transmission Date: 20061208
  Serious: Yes (Death)
  Sender: FDA-Public Use
  Company Number: 060627-0000571

PATIENT

DRUGS (2)
  1. L-LYSINE IBUPROFEN (IBUPROFEN LYSINE) [Suspect]
     Indication: PATENT DUCTUS ARTERIOSUS
     Dosage: SEE IMAGE
  2. SURFACTANT [Concomitant]

REACTIONS (7)
  - ECHOCARDIOGRAM ABNORMAL [None]
  - GENERAL PHYSICAL HEALTH DETERIORATION [None]
  - NEONATAL DISORDER [None]
  - NEONATAL HYPOXIA [None]
  - PULMONARY HYPERTENSION [None]
  - SEPSIS NEONATAL [None]
  - TRICUSPID VALVE INCOMPETENCE [None]
